FAERS Safety Report 15812283 (Version 2)
Quarter: 2019Q1

REPORT INFORMATION
  Report Type: Report from Study
  Country: CO (occurrence: CO)
  Receive Date: 20190111
  Receipt Date: 20190111
  Transmission Date: 20190417
  Serious: Yes (Hospitalization, Other)
  Sender: FDA-Public Use
  Company Number: PHHY2016CO009077

PATIENT
  Age: 78 Year
  Sex: Female
  Weight: 70 kg

DRUGS (7)
  1. GLIVEC [Suspect]
     Active Substance: IMATINIB MESYLATE
     Dosage: 400 MG, QD
     Route: 048
     Dates: end: 20160303
  2. LOSARTAN. [Suspect]
     Active Substance: LOSARTAN
     Dosage: 20 MG, Q12H
     Route: 048
  3. OMEPRAZOLE. [Concomitant]
     Active Substance: OMEPRAZOLE
     Indication: GASTRITIS
     Dosage: 1 TABLET OF 20 MG, FASTING
     Route: 065
  4. GLIVEC [Suspect]
     Active Substance: IMATINIB MESYLATE
     Indication: CHRONIC MYELOID LEUKAEMIA
     Dosage: 400 MG, QD
     Route: 048
     Dates: start: 20080725
  5. WINADEINE [Concomitant]
     Indication: PAIN
     Dosage: UNK UNK, PRN
     Route: 048
  6. IMATINIB. [Suspect]
     Active Substance: IMATINIB MESYLATE
     Indication: CHRONIC MYELOID LEUKAEMIA
     Route: 065
     Dates: start: 20160303
  7. LOSARTAN. [Suspect]
     Active Substance: LOSARTAN
     Indication: HYPERTENSION
     Dosage: 50 MG, Q12H
     Route: 048

REACTIONS (9)
  - Product dispensing error [Unknown]
  - Nausea [Unknown]
  - Cytogenetic analysis abnormal [Unknown]
  - Inflammation [Unknown]
  - Depressed mood [Unknown]
  - Vomiting [Unknown]
  - Pneumonia [Recovered/Resolved]
  - Diabetes mellitus [Unknown]
  - Dizziness [Unknown]

NARRATIVE: CASE EVENT DATE: 20160425
